FAERS Safety Report 5643521-6 (Version None)
Quarter: 2008Q1

REPORT INFORMATION
  Report Type: 
  Country: None (occurrence: None)
  Receive Date: 20080228
  Receipt Date: 20080222
  Transmission Date: 20080703
  Serious: Yes (Congenital Anomaly)
  Sender: FDA-Public Use
  Company Number: GB-BOEHRINGER INGELHEIM GMBH, GERMANY-2008-UK-00725UK

PATIENT

DRUGS (2)
  1. VIRAMUNE [Suspect]
     Indication: HIV INFECTION
     Route: 064
     Dates: start: 20070816, end: 20070830
  2. KIVEXA [Suspect]
     Route: 064

REACTIONS (3)
  - CARDIAC MALPOSITION [None]
  - CONGENITAL HEPATOBILIARY ANOMALY [None]
  - DIAPHRAGMATIC APLASIA [None]
